FAERS Safety Report 5569804-6 (Version None)
Quarter: 2007Q4

REPORT INFORMATION
  Report Type: 
  Country: None (occurrence: None)
  Receive Date: 20071218
  Receipt Date: 20071203
  Transmission Date: 20080405
  Serious: Yes (Other)
  Sender: FDA-Public Use
  Company Number: 2007S1013197

PATIENT
  Age: 74 Year
  Sex: Male

DRUGS (5)
  1. TERBINAFINE HYDROCHLORIDE [Suspect]
     Indication: ONYCHOMYCOSIS
     Dosage: 250 MG; DAILY;
     Dates: start: 20070724, end: 20070911
  2. ASPIRIN [Concomitant]
  3. GLICLAZIDE [Concomitant]
  4. METFORMIN HCL [Concomitant]
  5. RAMIPRIL [Concomitant]

REACTIONS (2)
  - AGEUSIA [None]
  - PARAESTHESIA ORAL [None]
